FAERS Safety Report 4734277-X (Version None)
Quarter: 2005Q3

REPORT INFORMATION
  Report Type: 
  Country: None (occurrence: None)
  Receive Date: 20050729
  Receipt Date: 20050708
  Transmission Date: 20060218
  Serious: Yes (Hospitalization, Other)
  Sender: FDA-Public Use
  Company Number: US_0406103466

PATIENT
  Age: 43 Year
  Sex: Male
  Weight: 91 kg

DRUGS (6)
  1. ZYPREXA [Suspect]
     Indication: PSYCHOTIC DISORDER
     Dosage: 20 MG/1 DAY
     Dates: start: 20011201, end: 20020602
  2. GEODON [Concomitant]
  3. TRILAFON (PERPHENAZINE ENANTATE) [Concomitant]
  4. TEGRETOL (CARBAMAZEPINE RIVOPHARM) [Concomitant]
  5. DEPAKOTE [Concomitant]
  6. CELEXA [Concomitant]

REACTIONS (28)
  - ACUTE MYOCARDIAL INFARCTION [None]
  - BLOOD CREATINE PHOSPHOKINASE INCREASED [None]
  - BLOOD CREATINE PHOSPHOKINASE MB INCREASED [None]
  - BLOOD CREATININE INCREASED [None]
  - BLOOD OSMOLARITY INCREASED [None]
  - BLOOD POTASSIUM INCREASED [None]
  - BLOOD PRESSURE SYSTOLIC INCREASED [None]
  - BLOOD UREA INCREASED [None]
  - CARBON DIOXIDE DECREASED [None]
  - CONFUSIONAL STATE [None]
  - CORONARY ARTERY DISEASE [None]
  - DELIRIUM [None]
  - DIABETES MELLITUS INSULIN-DEPENDENT [None]
  - DIABETIC COMA [None]
  - DIABETIC KETOACIDOSIS [None]
  - DRUG TOXICITY [None]
  - FEMORAL ARTERIAL STENOSIS [None]
  - GAIT DISTURBANCE [None]
  - HYPERVENTILATION [None]
  - ILEUS [None]
  - INCOHERENT [None]
  - PANCREATITIS [None]
  - RESPIRATORY RATE INCREASED [None]
  - SINUS TACHYCARDIA [None]
  - SOCIAL AVOIDANT BEHAVIOUR [None]
  - SOMNOLENCE [None]
  - VENTRICULAR HYPERTROPHY [None]
  - WHITE BLOOD CELL COUNT INCREASED [None]
